FAERS Safety Report 7034159-7 (Version None)
Quarter: 2010Q4

REPORT INFORMATION
  Report Type: 
  Country: None (occurrence: None)
  Receive Date: 20101008
  Receipt Date: 20100930
  Transmission Date: 20110411
  Serious: Yes (Hospitalization)
  Sender: FDA-Public Use
  Company Number: GXKR2009DE02531

PATIENT
  Age: 66 Year
  Sex: Male
  Weight: 54 kg

DRUGS (3)
  1. CLINDAMYCIN (NGX) [Suspect]
     Indication: WOUND INFECTION
     Dosage: 600 MG, TID
     Route: 048
     Dates: start: 20081007, end: 20081025
  2. IBUPROFEN (NGX) [Suspect]
     Indication: BONE PAIN
     Dosage: 800 MG, QD
     Route: 048
     Dates: start: 20080910
  3. NEXIUM [Concomitant]
     Indication: ABDOMINAL DISCOMFORT
     Route: 048

REACTIONS (1)
  - PSEUDOMEMBRANOUS COLITIS [None]
